FAERS Safety Report 7476814-0 (Version None)
Quarter: 2011Q2

REPORT INFORMATION
  Report Type: 
  Country: None (occurrence: None)
  Receive Date: 20110512
  Receipt Date: 20110502
  Transmission Date: 20111010
  Serious: Yes (Death, Other)
  Sender: FDA-Public Use
  Company Number: US-PFIZER INC-2011041631

PATIENT
  Sex: Male

DRUGS (6)
  1. MOMETASONE FUROATE [Concomitant]
  2. AMBIEN [Suspect]
     Indication: SLEEP DISORDER
     Dosage: 5 MG, UNK
     Route: 048
  3. ACETAMINOPHEN [Suspect]
  4. HYDROCODONE BITARTRATE [Suspect]
  5. MORPHINE SULFATE [Suspect]
  6. CYCLOBENZAPRINE [Suspect]

REACTIONS (8)
  - ANXIETY [None]
  - LOSS OF CONSCIOUSNESS [None]
  - SOMNAMBULISM [None]
  - DEPRESSION [None]
  - ARRHYTHMIA [None]
  - RESPIRATORY DEPRESSION [None]
  - DRUG INTERACTION [None]
  - MULTIPLE DRUG OVERDOSE ACCIDENTAL [None]
